FAERS Safety Report 12549832 (Version 1)
Quarter: 2016Q3

REPORT INFORMATION
  Report Type: Not Available
  Country: CN (occurrence: CN)
  Receive Date: 20160712
  Receipt Date: 20160712
  Transmission Date: 20161109
  Serious: Yes (Hospitalization, Other)
  Sender: FDA-Public Use
  Company Number: CN-PURDUE-GBR-2016-0038254

PATIENT
  Age: 80 Year
  Sex: Male

DRUGS (1)
  1. MORPHINE SULFATE PR TABLET [Suspect]
     Active Substance: MORPHINE SULFATE
     Indication: BACK PAIN
     Dosage: 80 MG, QID
     Route: 048
     Dates: start: 20160115, end: 20160130

REACTIONS (5)
  - Chest discomfort [Recovered/Resolved]
  - Gastrointestinal motility disorder [Recovered/Resolved]
  - Tachypnoea [Recovered/Resolved]
  - Dyspnoea [Recovered/Resolved]
  - Cough [Recovered/Resolved]

NARRATIVE: CASE EVENT DATE: 20160130
